FAERS Safety Report 19601506 (Version 1)
Quarter: 2021Q3

REPORT INFORMATION
  Report Type: Spontaneous
  Country: CA (occurrence: CA)
  Receive Date: 20210722
  Receipt Date: 20210722
  Transmission Date: 20211014
  Serious: Yes (Other)
  Sender: FDA-Public Use
  Company Number: CA-GREER LABORATORIES, INC.-2114187

PATIENT
  Age: 25 Year
  Sex: Male

DRUGS (7)
  1. ANIMAL ALLERGENS, DOG EPITHELIA, CANIS FAMILIARIS [Suspect]
     Active Substance: CANIS LUPUS FAMILIARIS SKIN
     Route: 058
  2. POLLENS ? TREES, ALDER, HAZEL, ALNUS SERRULATA [Suspect]
     Active Substance: ALNUS SERRULATA POLLEN
     Indication: PRODUCT USED FOR UNKNOWN INDICATION
     Route: 058
  3. DILUENT, NORMAL SALINE [Suspect]
     Active Substance: SODIUM CHLORIDE
     Route: 058
  4. STANDARDIZED MITE MIX [Suspect]
     Active Substance: DERMATOPHAGOIDES FARINAE\DERMATOPHAGOIDES PTERONYSSINUS
     Route: 058
  5. DILUENT, NORMAL SALINE [Suspect]
     Active Substance: SODIUM CHLORIDE
     Route: 058
  6. POLLENS ? TREES, BIRCH, WHITE, BETULA POPULIFOLIA [Suspect]
     Active Substance: BETULA POPULIFOLIA POLLEN
     Route: 058
  7. STANDARDIZED CAT HAIR [Suspect]
     Active Substance: FELIS CATUS HAIR
     Route: 058

REACTIONS (2)
  - Anaphylactic reaction [Recovered/Resolved]
  - Hypersensitivity [Recovered/Resolved]

NARRATIVE: CASE EVENT DATE: 20200925
